FAERS Safety Report 14863950 (Version 1)
Quarter: 2018Q2

REPORT INFORMATION
  Report Type: Spontaneous
  Country: US (occurrence: US)
  Receive Date: 20180508
  Receipt Date: 20180508
  Transmission Date: 20180711
  Serious: No
  Sender: FDA-Public Use
  Company Number: US-ALKERMES INC.-ALK-2017-003312

PATIENT
  Age: 46 Year
  Sex: Female

DRUGS (1)
  1. VIVITROL [Suspect]
     Active Substance: NALTREXONE
     Indication: DRUG USE DISORDER
     Dosage: 380 MG, QMO
     Route: 030
     Dates: start: 20170629

REACTIONS (10)
  - Fatigue [Not Recovered/Not Resolved]
  - Diarrhoea [Unknown]
  - Abdominal pain upper [Unknown]
  - Dry mouth [Not Recovered/Not Resolved]
  - Decreased appetite [Unknown]
  - Ageusia [Unknown]
  - Depression [Not Recovered/Not Resolved]
  - Injection site reaction [Unknown]
  - Injection site bruising [Unknown]
  - Bedridden [Recovered/Resolved]

NARRATIVE: CASE EVENT DATE: 20170713
